FAERS Safety Report 10413565 (Version 2)
Quarter: 2014Q3

REPORT INFORMATION
  Report Type: Spontaneous
  Country: NL (occurrence: NL)
  Receive Date: 20140827
  Receipt Date: 20140903
  Transmission Date: 20150326
  Serious: Yes (Other)
  Sender: FDA-Public Use
  Company Number: NL-BAYER-2014-126193

PATIENT
  Age: 76 Year
  Sex: Male

DRUGS (10)
  1. METOPROLOL [Concomitant]
     Active Substance: METOPROLOL
     Dosage: 47.5 MG, QD
  2. DICLOFENAC SODIUM. [Concomitant]
     Active Substance: DICLOFENAC SODIUM
     Dosage: 50 MG, BID
  3. METOCLOPRAMIDE. [Concomitant]
     Active Substance: METOCLOPRAMIDE
     Dosage: 10 MG, PRN
  4. ACETYLSALICYLIC ACID [Concomitant]
     Active Substance: ASPIRIN
     Dosage: 80 MG, QD
     Route: 048
  5. OMEPRAZOL [Concomitant]
     Active Substance: OMEPRAZOLE
     Dosage: 20 MG, QD
  6. PRIMPERAN [Concomitant]
     Active Substance: METOCLOPRAMIDE HYDROCHLORIDE
     Dosage: 20 MG, PRN
  7. FUROSEMIDE [FUROSEMIDE] [Concomitant]
     Dosage: 40 MG, QD
  8. XOFIGO [Suspect]
     Active Substance: RADIUM RA-223 DICHLORIDE
     Indication: PROSTATE CANCER METASTATIC
     Dosage: 5.31 MBQ, Q1MON
     Route: 042
     Dates: start: 20140821
  9. SYMBICORT [Concomitant]
     Active Substance: BUDESONIDE\FORMOTEROL FUMARATE DIHYDRATE
     Dosage: 400/12
  10. PREDNISOLON [PREDNISOLONE] [Concomitant]
     Dosage: 5 MG, BID

REACTIONS (7)
  - Pallor [None]
  - Back pain [None]
  - Malaise [Recovered/Resolved]
  - Circulatory collapse [None]
  - Nausea [None]
  - Vomiting [Recovering/Resolving]
  - Oral discharge [None]

NARRATIVE: CASE EVENT DATE: 20140821
